FAERS Safety Report 10111491 (Version 1)
Quarter: 2014Q2

REPORT INFORMATION
  Report Type: Spontaneous
  Country: DE (occurrence: DE)
  Receive Date: 20140425
  Receipt Date: 20140425
  Transmission Date: 20141212
  Serious: Yes (Life-Threatening)
  Sender: FDA-Public Use
  Company Number: GXKR2014DE001696

PATIENT
  Sex: 0

DRUGS (4)
  1. RANITIC [Suspect]
  2. ALIZAPRIDE HYDROCHLORIDE [Suspect]
     Dosage: 200 MG, UNK
  3. FENISTIL [Concomitant]
  4. DEXAMETHASON//DEXAMETHASONE [Concomitant]

REACTIONS (3)
  - Presyncope [Recovered/Resolved]
  - Thrombocytopenia [Recovered/Resolved]
  - Back pain [Recovered/Resolved]
